FAERS Safety Report 5221955-1 (Version None)
Quarter: 2007Q1

REPORT INFORMATION
  Report Type: 
  Country: None (occurrence: None)
  Receive Date: 20070129
  Receipt Date: 20060203
  Transmission Date: 20070707
  Serious: No
  Sender: FDA-Public Use
  Company Number: US-GLAXOSMITHKLINE-A0592273A

PATIENT
  Sex: Male

DRUGS (6)
  1. WELLBUTRIN [Suspect]
     Indication: DEPRESSION
     Dosage: 75MG TWICE PER DAY
     Route: 048
     Dates: start: 20060120
  2. ATENOLOL [Concomitant]
  3. TYLENOL [Concomitant]
  4. LISINOPRIL [Concomitant]
  5. PLAVIX [Concomitant]
  6. LOVASTATIN [Concomitant]

REACTIONS (2)
  - ANXIETY [None]
  - DEPRESSION [None]
